FAERS Safety Report 16041664 (Version 1)
Quarter: 2019Q1

REPORT INFORMATION
  Report Type: Spontaneous
  Country: US (occurrence: US)
  Receive Date: 20190306
  Receipt Date: 20190306
  Transmission Date: 20190418
  Serious: No
  Sender: FDA-Public Use
  Company Number: US-PFIZER INC-2019082781

PATIENT
  Sex: Female
  Weight: 54 kg

DRUGS (1)
  1. PREMARIN [Suspect]
     Active Substance: ESTROGENS, CONJUGATED
     Indication: HERPES VIRUS INFECTION
     Dosage: 0.5 MG, 3X/DAY
     Route: 067

REACTIONS (3)
  - Memory impairment [Unknown]
  - Contraindicated product administered [Unknown]
  - Product use in unapproved indication [Unknown]
